FAERS Safety Report 24860574 (Version 1)
Quarter: 2025Q1

REPORT INFORMATION
  Report Type: Spontaneous
  Country: US (occurrence: US)
  Receive Date: 20250120
  Receipt Date: 20250120
  Transmission Date: 20250409
  Serious: Yes (Death, Hospitalization)
  Sender: GRIFOLS
  Company Number: US-IGSA-BIG0032413

PATIENT
  Age: 55 Year
  Sex: Female
  Weight: 45 kg

DRUGS (6)
  1. PROLASTIN-C LIQUID [Suspect]
     Active Substance: .ALPHA.1-PROTEINASE INHIBITOR HUMAN
     Indication: Alpha-1 antitrypsin deficiency
     Dosage: 2748 MILLIGRAM, Q.WK.
     Route: 042
  2. BETAMETHASONE\CLOTRIMAZOLE [Concomitant]
     Active Substance: BETAMETHASONE\CLOTRIMAZOLE
  3. HYDROCORTISONE [Concomitant]
     Active Substance: HYDROCORTISONE
  4. OXYGEN [Concomitant]
     Active Substance: OXYGEN
  5. VITAMIN D3 [Concomitant]
     Active Substance: CHOLECALCIFEROL
  6. ANORO ELLIPTA [Concomitant]
     Active Substance: UMECLIDINIUM BROMIDE\VILANTEROL TRIFENATATE

REACTIONS (1)
  - Death [Fatal]

NARRATIVE: CASE EVENT DATE: 20250105
